FAERS Safety Report 8696138 (Version 2)
Quarter: 2013Q4

REPORT INFORMATION
  Report Type: Spontaneous
  Country: US (occurrence: US)
  Receive Date: 20120801
  Receipt Date: 20131107
  Transmission Date: 20140711
  Serious: Yes (Hospitalization)
  Sender: FDA-Public Use
  Company Number: US-009507513-1207USA009980

PATIENT
  Age: 44 Year
  Sex: Female

DRUGS (4)
  1. ZOCOR [Suspect]
     Dosage: 20 MG, QD
     Route: 048
  2. WARFARIN [Suspect]
     Dosage: 1-6 MG, QD
     Route: 048
  3. ACETAMINOPHEN [Suspect]
     Dosage: 650 MG, QID
     Route: 048
  4. CYMBALTA [Suspect]
     Dosage: 50 MG, QD

REACTIONS (5)
  - Aspartate aminotransferase increased [Unknown]
  - International normalised ratio increased [Unknown]
  - Alanine aminotransferase increased [Unknown]
  - Drug interaction [Unknown]
  - Haemoglobin decreased [Unknown]
